FAERS Safety Report 14600207 (Version 3)
Quarter: 2018Q1

REPORT INFORMATION
  Report Type: Spontaneous
  Country: JP (occurrence: JP)
  Receive Date: 20180305
  Receipt Date: 20180308
  Transmission Date: 20180509
  Serious: Yes (Death, Hospitalization, Other)
  Sender: FDA-Public Use
  Company Number: JP-ASTRAZENECA-2017SF11928

PATIENT
  Age: 60 Year
  Sex: Female
  Weight: 36 kg

DRUGS (15)
  1. TAGRISSO [Suspect]
     Active Substance: OSIMERTINIB
     Indication: NON-SMALL CELL LUNG CANCER
     Route: 048
     Dates: start: 20170317
  2. GRACEVIT [Concomitant]
     Active Substance: SITAFLOXACIN
     Indication: ATYPICAL MYCOBACTERIAL INFECTION
     Route: 048
     Dates: start: 20170427, end: 20170831
  3. DENOTAS [Concomitant]
     Active Substance: CALCIUM CARBONATE\CHOLECALCIFEROL\MAGNESIUM CARBONATE
     Indication: HYPOCALCAEMIA
     Route: 048
     Dates: end: 20171027
  4. TAGRISSO [Suspect]
     Active Substance: OSIMERTINIB
     Indication: NON-SMALL CELL LUNG CANCER
     Route: 048
  5. IRESSA [Suspect]
     Active Substance: GEFITINIB
     Indication: NON-SMALL CELL LUNG CANCER
     Route: 048
     Dates: start: 20160331, end: 20170316
  6. REBAMIPIDE [Concomitant]
     Active Substance: REBAMIPIDE
     Indication: PROPHYLAXIS AGAINST GASTROINTESTINAL ULCER
     Route: 048
     Dates: start: 20170928, end: 20171031
  7. ZYPREXA [Concomitant]
     Active Substance: OLANZAPINE
     Indication: DECREASED APPETITE
     Route: 048
     Dates: start: 20171016, end: 20171031
  8. CARBOCISTEINE [Concomitant]
     Active Substance: CARBOCYSTEINE
     Indication: COUGH
     Route: 048
     Dates: start: 20170706, end: 20171031
  9. RANMARK [Concomitant]
     Active Substance: DENOSUMAB
     Indication: METASTASES TO BONE
     Route: 058
     Dates: end: 20170928
  10. DOGMATYL [Concomitant]
     Active Substance: SULPIRIDE
     Indication: DECREASED APPETITE
     Route: 048
     Dates: end: 20171016
  11. CODEINE PHOSPHATE [Concomitant]
     Active Substance: CODEINE PHOSPHATE
     Indication: COUGH
     Route: 048
     Dates: start: 20170706, end: 20171031
  12. EBUTOL [Concomitant]
     Active Substance: ETHAMBUTOL HYDROCHLORIDE
     Indication: ATYPICAL MYCOBACTERIAL INFECTION
     Route: 048
     Dates: start: 20170413, end: 20170831
  13. LOXOPROFEN [Concomitant]
     Active Substance: LOXOPROFEN
     Indication: CANCER PAIN
     Route: 048
     Dates: start: 20170928, end: 20171031
  14. IRESSA [Suspect]
     Active Substance: GEFITINIB
     Indication: LUNG ADENOCARCINOMA
     Route: 048
     Dates: start: 20160331, end: 20170316
  15. CLARITHROMYCIN. [Concomitant]
     Active Substance: CLARITHROMYCIN
     Indication: ATYPICAL MYCOBACTERIAL INFECTION
     Route: 048
     Dates: start: 20170413, end: 20170525

REACTIONS (7)
  - Weight decreased [Unknown]
  - Malignant neoplasm progression [Recovered/Resolved]
  - Metastases to lymph nodes [Unknown]
  - Dysgeusia [Not Recovered/Not Resolved]
  - Metastases to central nervous system [Unknown]
  - Interstitial lung disease [Recovering/Resolving]
  - Metastases to bone [Unknown]

NARRATIVE: CASE EVENT DATE: 20171013
